FAERS Safety Report 4685506-2 (Version None)
Quarter: 2005Q2

REPORT INFORMATION
  Report Type: 
  Country: None (occurrence: None)
  Receive Date: 20050608
  Receipt Date: 20050527
  Transmission Date: 20051028
  Serious: Yes (Other)
  Sender: FDA-Public Use
  Company Number: GB-BRISTOL-MYERS SQUIBB COMPANY-12989034

PATIENT
  Sex: Female

DRUGS (1)
  1. VELOSEF [Suspect]

REACTIONS (2)
  - PLATELET COUNT DECREASED [None]
  - PREGNANCY [None]
